FAERS Safety Report 7929082-7 (Version None)
Quarter: 2011Q4

REPORT INFORMATION
  Report Type: 
  Country: None (occurrence: None)
  Receive Date: 20111119
  Receipt Date: 20111115
  Transmission Date: 20120403
  Serious: Yes (Life-Threatening, Hospitalization)
  Sender: FDA-Public Use
  Company Number: CA-ASTRAZENECA-2011SE69081

PATIENT
  Age: 38 Year
  Sex: Male
  Weight: 113.4 kg

DRUGS (1)
  1. BUDESONIDE [Suspect]
     Route: 048

REACTIONS (5)
  - DRUG INEFFECTIVE [None]
  - ABDOMINAL PAIN [None]
  - ABDOMINAL DISTENSION [None]
  - LARGE INTESTINAL OBSTRUCTION [None]
  - FAECAL VOMITING [None]
